FAERS Safety Report 5360212-X (Version None)
Quarter: 2007Q2

REPORT INFORMATION
  Report Type: 
  Country: None (occurrence: None)
  Receive Date: 20070618
  Receipt Date: 20070607
  Transmission Date: 20071010
  Serious: Yes (Other)
  Sender: FDA-Public Use
  Company Number: PHBS2007IT09778

PATIENT
  Age: 64 Year
  Sex: Male

DRUGS (5)
  1. ULCEX [Concomitant]
     Dosage: 150 MG/D
     Route: 048
  2. DIURESIX [Concomitant]
     Dosage: 10 MG/D
     Route: 048
  3. CARDURA [Concomitant]
     Dosage: 2 MG/D
     Route: 048
  4. ASPIRIN [Concomitant]
     Route: 048
  5. LESCOL [Suspect]
     Indication: DYSLIPIDAEMIA
     Dosage: 80 MG/D
     Route: 048
     Dates: start: 20061204, end: 20070221

REACTIONS (6)
  - BLOOD CREATINE PHOSPHOKINASE INCREASED [None]
  - BLOOD CREATININE INCREASED [None]
  - BLOOD UREA INCREASED [None]
  - HAEMOGLOBINURIA [None]
  - PROTEINURIA [None]
  - RENAL FAILURE [None]
